FAERS Safety Report 13463831 (Version 1)
Quarter: 2017Q2

REPORT INFORMATION
  Report Type: Spontaneous
  Country: US (occurrence: US)
  Receive Date: 20170420
  Receipt Date: 20170420
  Transmission Date: 20170830
  Serious: Yes (Other)
  Sender: FDA-Public Use
  Company Number: US-ROCHE-686359

PATIENT
  Age: 17 Year
  Sex: Female
  Weight: 75.8 kg

DRUGS (6)
  1. ACCUTANE [Suspect]
     Active Substance: ISOTRETINOIN
     Indication: ACNE CYSTIC
     Route: 065
     Dates: start: 19970630, end: 199711
  2. CLARAVIS [Suspect]
     Active Substance: ISOTRETINOIN
     Route: 065
     Dates: start: 200311, end: 200403
  3. TRIPHASIL [Concomitant]
     Active Substance: ETHINYL ESTRADIOL\LEVONORGESTREL
     Route: 065
  4. BENZAMYCIN [Concomitant]
     Active Substance: BENZOYL PEROXIDE\ERYTHROMYCIN
     Route: 061
  5. ACCUTANE [Suspect]
     Active Substance: ISOTRETINOIN
     Route: 065
     Dates: start: 20010515, end: 200106
  6. CLARAVIS [Suspect]
     Active Substance: ISOTRETINOIN
     Indication: ACNE
     Dosage: STRENGTH 40 MG AND 20 MG
     Route: 065
     Dates: start: 200306, end: 200307

REACTIONS (5)
  - Colitis ulcerative [Unknown]
  - Inflammatory bowel disease [Unknown]
  - Blood triglycerides increased [Recovered/Resolved]
  - Epistaxis [Unknown]
  - Crohn^s disease [Unknown]

NARRATIVE: CASE EVENT DATE: 19970916
